FAERS Safety Report 7521813-3 (Version None)
Quarter: 2011Q2

REPORT INFORMATION
  Report Type: 
  Country: None (occurrence: None)
  Receive Date: 20110603
  Receipt Date: 20091122
  Transmission Date: 20111010
  Serious: Yes (Death, Other)
  Sender: FDA-Public Use
  Company Number: US-BAYER-200939859NA

PATIENT
  Age: 60 Year
  Sex: Female
  Weight: 69.841 kg

DRUGS (10)
  1. TRASYLOL [Suspect]
  2. MICARDIS [Concomitant]
  3. TRASYLOL [Suspect]
     Dosage: UNK
  4. LOPRESSOR [Concomitant]
     Dosage: 12.5 MG TWICE DAILY
     Route: 048
  5. LISINOPRIL [Concomitant]
     Dosage: 10 MG Q DAY
     Route: 048
  6. TRASYLOL [Suspect]
     Indication: MITRAL VALVE REPAIR
     Dosage: LOADING DOSE OF 200 ML OVER 30 MINUTES, THEN 50 ML/HR
     Route: 042
     Dates: start: 20050318, end: 20050318
  7. TRASYLOL [Suspect]
     Indication: CORONARY ARTERY BYPASS
     Dosage: 1 ML, ONCE, INTIAL TEST DOSE
     Route: 042
     Dates: start: 20050318, end: 20050318
  8. TRASYLOL [Suspect]
  9. TRASYLOL [Suspect]
  10. NITROGLYCERIN [Concomitant]
     Dosage: 10 MCG/MIN
     Route: 042

REACTIONS (13)
  - DEATH [None]
  - INJURY [None]
  - RENAL INJURY [None]
  - STRESS [None]
  - RENAL IMPAIRMENT [None]
  - EMOTIONAL DISTRESS [None]
  - RENAL FAILURE [None]
  - ANXIETY [None]
  - FEAR [None]
  - PAIN [None]
  - MULTI-ORGAN FAILURE [None]
  - UNEVALUABLE EVENT [None]
  - ANHEDONIA [None]
